FAERS Safety Report 24878708 (Version 1)
Quarter: 2025Q1

REPORT INFORMATION
  Report Type: Spontaneous
  Country: US (occurrence: None)
  Receive Date: 20250122
  Receipt Date: 20250122
  Transmission Date: 20250409
  Serious: Yes (Hospitalization)
  Sender: FDA-CTU
  Company Number: None

PATIENT
  Age: 85 Year
  Sex: Male
  Weight: 88 kg

DRUGS (1)
  1. FLUDROCORTISONE ACETATE [Suspect]
     Active Substance: FLUDROCORTISONE ACETATE
     Indication: Hypotension
     Dosage: FREQUENCY : DAILY;?
     Route: 048
     Dates: start: 20241008, end: 20241213

REACTIONS (4)
  - Hypertension [None]
  - Hypokalaemia [None]
  - Pulmonary oedema [None]
  - Cardiac failure [None]

NARRATIVE: CASE EVENT DATE: 20241206
